FAERS Safety Report 24799231 (Version 1)
Quarter: 2025Q1

REPORT INFORMATION
  Report Type: Report from Study
  Country: US (occurrence: US)
  Receive Date: 20250102
  Receipt Date: 20250102
  Transmission Date: 20250408
  Serious: Yes (Hospitalization, Other)
  Sender: GILEAD
  Company Number: US-GILEAD-2024-0698423

PATIENT
  Sex: Male

DRUGS (14)
  1. AZTREONAM LYSINE [Suspect]
     Active Substance: AZTREONAM LYSINE
     Indication: Cystic fibrosis lung
     Dosage: 1 VIAL (75 MG) VIA ALTERA NEBULIZER THREE TIMES DAILY, CYCLING 28 DAYS ON AND 28 DAYS OFF
     Route: 065
  2. PULMOZYME [Concomitant]
     Active Substance: DORNASE ALFA
  3. AZELASTINE [Concomitant]
     Active Substance: AZELASTINE
  4. LEVOCETIRIZINE [Concomitant]
     Active Substance: LEVOCETIRIZINE
  5. LEVALBUTEROL [Concomitant]
     Active Substance: LEVALBUTEROL
  6. NOVOLOG [Concomitant]
     Active Substance: INSULIN ASPART
  7. SYMBICORT [Concomitant]
     Active Substance: BUDESONIDE\FORMOTEROL FUMARATE DIHYDRATE
  8. URSODIOL [Concomitant]
     Active Substance: URSODIOL
  9. SODIUM CHLORIDE [Concomitant]
     Active Substance: SODIUM CHLORIDE
  10. VITAMIN A [Concomitant]
     Active Substance: VITAMIN A
  11. SERTRALINE [Concomitant]
     Active Substance: SERTRALINE HYDROCHLORIDE
  12. VITAMIN D NOS [Concomitant]
     Active Substance: CHOLECALCIFEROL\ERGOCALCIFEROL
  13. OMEPRAZOLE [Concomitant]
     Active Substance: OMEPRAZOLE
  14. ZENPEP [Concomitant]
     Active Substance: PANCRELIPASE AMYLASE\PANCRELIPASE LIPASE\PANCRELIPASE PROTEASE

REACTIONS (1)
  - Infective pulmonary exacerbation of cystic fibrosis [Unknown]
